FAERS Safety Report 5315422-4 (Version None)
Quarter: 2007Q2

REPORT INFORMATION
  Report Type: 
  Country: None (occurrence: None)
  Receive Date: 20070503
  Receipt Date: 20070427
  Transmission Date: 20071010
  Serious: Yes (Hospitalization)
  Sender: FDA-Public Use
  Company Number: PHEH2007US06511

PATIENT
  Sex: Male

DRUGS (2)
  1. PLAVIX [Concomitant]
  2. ZELNORM [Suspect]
     Indication: CONSTIPATION
     Dosage: 6 MG, BID
     Route: 048
     Dates: start: 20061001, end: 20070409

REACTIONS (4)
  - ANGINA PECTORIS [None]
  - ANGIOPLASTY [None]
  - CHEST PAIN [None]
  - MUSCLE SPASMS [None]
